FAERS Safety Report 17730416 (Version 1)
Quarter: 2020Q2

REPORT INFORMATION
  Report Type: Report from Study
  Country: NL (occurrence: NL)
  Receive Date: 20200430
  Receipt Date: 20200430
  Transmission Date: 20200714
  Serious: Yes (Hospitalization)
  Sender: FDA-Public Use
  Company Number: NL-MYLANLABS-2020M1042346

PATIENT
  Age: 19 Year
  Sex: Female

DRUGS (3)
  1. AZATHIOPRINE. [Suspect]
     Active Substance: AZATHIOPRINE
     Indication: CROHN^S DISEASE
     Dosage: 50MG, 3X/D
     Route: 048
     Dates: start: 20091103, end: 20091110
  2. PREDNISON [Concomitant]
     Active Substance: PREDNISONE
     Dosage: 40MG, 1X/D
     Route: 048
     Dates: start: 20091110, end: 20100130
  3. BUDESONIDE. [Concomitant]
     Active Substance: BUDESONIDE
     Dosage: 3MG, 3X/D
     Route: 048
     Dates: start: 20091103, end: 20091110

REACTIONS (2)
  - Liver function test increased [Recovered/Resolved]
  - Amylase increased [Recovered/Resolved]

NARRATIVE: CASE EVENT DATE: 20091110
